FAERS Safety Report 4839779-3 (Version None)
Quarter: 2005Q4

REPORT INFORMATION
  Report Type: 
  Country: None (occurrence: None)
  Receive Date: 20051129
  Receipt Date: 20050901
  Transmission Date: 20060501
  Serious: No
  Sender: FDA-Public Use
  Company Number: US-GLAXOSMITHKLINE-A0572766A

PATIENT
  Age: 35 Year
  Sex: Female

DRUGS (5)
  1. WELLBUTRIN SR [Suspect]
     Indication: DEPRESSION
     Dosage: 150MG PER DAY
     Route: 048
  2. BUPROPION HCL [Suspect]
     Indication: DEPRESSION
     Route: 048
  3. ZOLOFT [Concomitant]
  4. TRAMADOL [Concomitant]
  5. PAIN MEDICATION [Concomitant]

REACTIONS (5)
  - DISTURBANCE IN ATTENTION [None]
  - EMOTIONAL DISORDER [None]
  - FEELING JITTERY [None]
  - MEMORY IMPAIRMENT [None]
  - THERMAL BURN [None]
